FAERS Safety Report 6064946-3 (Version None)
Quarter: 2009Q1

REPORT INFORMATION
  Report Type: 
  Country: None (occurrence: None)
  Receive Date: 20090204
  Receipt Date: 20090202
  Transmission Date: 20090719
  Serious: Yes (Other)
  Sender: FDA-Public Use
  Company Number: PH-MERCK-0901PHL00009

PATIENT
  Age: 4 Year
  Sex: Female

DRUGS (1)
  1. SINGULAIR [Suspect]
     Indication: ASTHMA
     Route: 048
     Dates: start: 20080101, end: 20080101

REACTIONS (3)
  - INSOMNIA [None]
  - MOOD SWINGS [None]
  - SELF INJURIOUS BEHAVIOUR [None]
